FAERS Safety Report 18340341 (Version 3)
Quarter: 2020Q4

REPORT INFORMATION
  Report Type: Report from Study
  Country: US (occurrence: US)
  Receive Date: 20201002
  Receipt Date: 20201009
  Transmission Date: 20210113
  Serious: Yes (Death, Life-Threatening, Hospitalization, Other)
  Sender: FDA-Public Use
  Company Number: US-ASTRAZENECA-2020SF23690

PATIENT
  Age: 54 Year
  Sex: Female

DRUGS (173)
  1. ACALABRUTINIB. [Suspect]
     Active Substance: ACALABRUTINIB
     Indication: COVID-19
     Route: 048
     Dates: start: 20200720
  2. ACALABRUTINIB. [Suspect]
     Active Substance: ACALABRUTINIB
     Indication: COVID-19
     Route: 048
     Dates: start: 20200723
  3. ACETAMINOPHEN. [Concomitant]
     Active Substance: ACETAMINOPHEN
     Indication: FIBROMYALGIA
     Dosage: 3900.0MG AS REQUIRED
     Route: 048
     Dates: start: 20200713, end: 20200725
  4. ACETAMINOPHEN. [Concomitant]
     Active Substance: ACETAMINOPHEN
     Indication: HEADACHE
     Dosage: 650.0MG AS REQUIRED
     Route: 048
     Dates: start: 20200731, end: 20200731
  5. ACETAMINOPHEN. [Concomitant]
     Active Substance: ACETAMINOPHEN
     Indication: PAIN
     Dosage: 650.0MG AS REQUIRED
     Route: 048
     Dates: start: 20200731, end: 20200731
  6. ACETAMINOPHEN. [Concomitant]
     Active Substance: ACETAMINOPHEN
     Indication: FIBROMYALGIA
     Dosage: 325.000 MG AS REQUIRED
     Route: 048
     Dates: start: 20200731, end: 20200808
  7. AZITHROMYCIN ANHYDROUS. [Concomitant]
     Active Substance: AZITHROMYCIN ANHYDROUS
     Indication: EVIDENCE BASED TREATMENT
     Route: 048
     Dates: start: 20200714, end: 20200718
  8. ZOSYN [Concomitant]
     Active Substance: PIPERACILLIN SODIUM\TAZOBACTAM SODIUM
     Indication: EVIDENCE BASED TREATMENT
     Route: 042
     Dates: start: 20200722, end: 20200801
  9. VECURONIUM BROMIDE. [Concomitant]
     Active Substance: VECURONIUM BROMIDE
     Indication: SEDATION
     Dosage: 0.500 OTHER
     Route: 042
     Dates: start: 20200804
  10. POTASSIUM CHLORIDE. [Concomitant]
     Active Substance: POTASSIUM CHLORIDE
     Indication: HYPOKALAEMIA
     Route: 042
     Dates: start: 20200712, end: 20200713
  11. VANCOMYCIN [Concomitant]
     Active Substance: VANCOMYCIN
     Indication: EVIDENCE BASED TREATMENT
     Route: 042
     Dates: start: 20200731, end: 20200801
  12. ZINC SULFATE. [Concomitant]
     Active Substance: ZINC SULFATE
     Indication: SUPPLEMENTATION THERAPY
     Route: 048
     Dates: start: 20200728, end: 20200728
  13. LOPERAMIDE [Concomitant]
     Active Substance: LOPERAMIDE
     Indication: DIARRHOEA
     Route: 048
     Dates: start: 20200729, end: 20200729
  14. DIPHENHYDRAMINE HCL [Concomitant]
     Active Substance: DIPHENHYDRAMINE HYDROCHLORIDE
     Indication: INSOMNIA
     Route: 042
     Dates: start: 20200719, end: 20200719
  15. ALBUTEROL IPRATROPIUM [Concomitant]
     Active Substance: ALBUTEROL\IPRATROPIUM
     Indication: WHEEZING
     Dosage: 6.000 ML
     Route: 042
     Dates: start: 20200715, end: 20200715
  16. ALBUTEROL IPRATROPIUM [Concomitant]
     Active Substance: ALBUTEROL\IPRATROPIUM
     Indication: BRONCHOSPASM
     Dosage: 6.000 ML
     Route: 042
     Dates: start: 20200715, end: 20200715
  17. ALBUTEROL IPRATROPIUM [Concomitant]
     Active Substance: ALBUTEROL\IPRATROPIUM
     Indication: BRONCHOSPASM
     Dosage: 6.000 ML
     Route: 042
     Dates: start: 20200722, end: 20200722
  18. ALBUTEROL IPRATROPIUM [Concomitant]
     Active Substance: ALBUTEROL\IPRATROPIUM
     Indication: BRONCHOSPASM
     Dosage: 9.000 ML
     Route: 042
     Dates: start: 20200723, end: 20200724
  19. ALBUTEROL IPRATROPIUM [Concomitant]
     Active Substance: ALBUTEROL\IPRATROPIUM
     Indication: BRONCHOSPASM
     Dosage: 9.000 ML
     Route: 042
     Dates: start: 20200727, end: 20200807
  20. PHENYLEPHRINE HCL [Concomitant]
     Active Substance: PHENYLEPHRINE HYDROCHLORIDE
     Indication: HYPOTENSION
     Route: 042
     Dates: start: 20200806, end: 20200806
  21. DUCOSATE SODIUM [Concomitant]
     Indication: CONSTIPATION
     Route: 065
     Dates: start: 20200728, end: 20200807
  22. SODIUM PHOSPHATE [Concomitant]
     Active Substance: SODIUM PHOSPHATE
     Indication: HYPOPHOSPHATAEMIA
     Route: 042
     Dates: start: 20200713, end: 20200713
  23. CALCIUM CHLORIDE. [Concomitant]
     Active Substance: CALCIUM CHLORIDE
     Indication: HYPOCALCAEMIA
     Route: 042
     Dates: start: 20200713, end: 20200713
  24. CALCIUM CHLORIDE. [Concomitant]
     Active Substance: CALCIUM CHLORIDE
     Indication: HYPOCALCAEMIA
     Route: 042
     Dates: start: 20200728, end: 20200728
  25. ACALABRUTINIB. [Suspect]
     Active Substance: ACALABRUTINIB
     Indication: COVID-19
     Route: 048
     Dates: start: 20200717
  26. ACALABRUTINIB. [Suspect]
     Active Substance: ACALABRUTINIB
     Indication: COVID-19
     Route: 048
     Dates: start: 20200718
  27. ACALABRUTINIB. [Suspect]
     Active Substance: ACALABRUTINIB
     Indication: COVID-19
     Route: 048
     Dates: start: 20200722
  28. HYDROCODONE [Concomitant]
     Active Substance: HYDROCODONE
     Indication: PAIN
     Dosage: 5.000 MG
     Route: 048
     Dates: end: 20200726
  29. HYDROCODONE [Concomitant]
     Active Substance: HYDROCODONE
     Indication: FIBROMYALGIA
     Dosage: 5.000 MG
     Route: 048
     Dates: start: 20200731, end: 20200808
  30. VANCOMYCIN HCL [Concomitant]
     Active Substance: VANCOMYCIN HYDROCHLORIDE
     Indication: EVIDENCE BASED TREATMENT
     Route: 042
     Dates: start: 20200722, end: 20200724
  31. VECURONIUM BROMIDE. [Concomitant]
     Active Substance: VECURONIUM BROMIDE
     Indication: SEDATION
     Dosage: 0.500 OTHER
     Route: 042
     Dates: start: 20200804
  32. POTASSIUM CHLORIDE. [Concomitant]
     Active Substance: POTASSIUM CHLORIDE
     Indication: HYPOKALAEMIA
     Dosage: 20.000 MEQ
     Route: 042
     Dates: start: 20200729, end: 20200804
  33. HYDROCORTISONE SODIUM SUCCINATE [Concomitant]
     Active Substance: HYDROCORTISONE SODIUM SUCCINATE
     Indication: ACUTE RESPIRATORY DISTRESS SYNDROME
     Route: 042
     Dates: start: 20200807
  34. VANCOMYCIN [Concomitant]
     Active Substance: VANCOMYCIN
     Indication: EVIDENCE BASED TREATMENT
     Route: 042
     Dates: start: 20200731, end: 20200801
  35. ALBUTEROL IPRATROPIUM [Concomitant]
     Active Substance: ALBUTEROL\IPRATROPIUM
     Indication: BRONCHOSPASM
     Dosage: 6.000 ML
     Route: 042
     Dates: start: 20200715, end: 20200715
  36. ALBUTEROL IPRATROPIUM [Concomitant]
     Active Substance: ALBUTEROL\IPRATROPIUM
     Indication: BRONCHOSPASM
     Dosage: 6.000 ML
     Route: 042
     Dates: start: 20200722, end: 20200722
  37. ALBUTEROL IPRATROPIUM [Concomitant]
     Active Substance: ALBUTEROL\IPRATROPIUM
     Indication: BRONCHOSPASM
     Dosage: 9.000 ML
     Route: 042
     Dates: start: 20200723, end: 20200724
  38. SODIUM BICARBONATE. [Concomitant]
     Active Substance: SODIUM BICARBONATE
     Indication: ACIDOSIS
     Route: 042
     Dates: start: 20200728, end: 20200728
  39. SODIUM PHOSPHATE [Concomitant]
     Active Substance: SODIUM PHOSPHATE
     Indication: HYPOPHOSPHATAEMIA
     Dosage: 20.000 MEQ
     Route: 042
     Dates: start: 20200730, end: 20200731
  40. MAGNESIUM SULFATE. [Concomitant]
     Active Substance: MAGNESIUM SULFATE
     Indication: HYPOMAGNESAEMIA
     Route: 042
     Dates: start: 20200729, end: 20200729
  41. ACALABRUTINIB. [Suspect]
     Active Substance: ACALABRUTINIB
     Indication: COVID-19
     Route: 048
     Dates: start: 20200719
  42. ACETAMINOPHEN. [Concomitant]
     Active Substance: ACETAMINOPHEN
     Indication: PYREXIA
     Dosage: 325.0MG AS REQUIRED
     Route: 048
     Dates: end: 20200726
  43. ENOXAPARIN SODIUM. [Concomitant]
     Active Substance: ENOXAPARIN SODIUM
     Indication: PROPHYLAXIS
     Route: 058
     Dates: start: 20200712, end: 20200725
  44. AZITHROMYCIN ANHYDROUS. [Concomitant]
     Active Substance: AZITHROMYCIN ANHYDROUS
     Indication: EVIDENCE BASED TREATMENT
     Route: 048
     Dates: start: 20200728, end: 20200801
  45. ALBUTEROL IPRATOPIUM [Concomitant]
     Indication: COVID-19 PNEUMONIA
     Route: 055
     Dates: start: 20200715, end: 20200721
  46. DOCUSATE SODIUM. [Concomitant]
     Active Substance: DOCUSATE SODIUM
     Indication: CONSTIPATION
     Route: 048
     Dates: start: 20200727, end: 20200727
  47. VECURONIUM BROMIDE. [Concomitant]
     Active Substance: VECURONIUM BROMIDE
     Indication: SEDATION
     Route: 042
     Dates: start: 20200727, end: 20200727
  48. VECURONIUM BROMIDE. [Concomitant]
     Active Substance: VECURONIUM BROMIDE
     Indication: SEDATION
     Route: 042
     Dates: start: 20200727, end: 20200727
  49. MIDAZOLAM HCL [Concomitant]
     Active Substance: MIDAZOLAM HYDROCHLORIDE
     Indication: SEDATION
     Route: 042
     Dates: start: 20200727, end: 20200727
  50. NOREPINEPHRINE BITARTRATE. [Concomitant]
     Active Substance: NOREPINEPHRINE BITARTRATE
     Indication: HYPOTENSION
     Dosage: 15.000 OTHER
     Route: 042
     Dates: start: 20200727
  51. POTASSIUM CHLORIDE. [Concomitant]
     Active Substance: POTASSIUM CHLORIDE
     Indication: HYPOKALAEMIA
     Dosage: 20.000 MEQ
     Route: 042
     Dates: start: 20200729, end: 20200804
  52. HYDROCORTISONE SODIUM SUCCINATE [Concomitant]
     Active Substance: HYDROCORTISONE SODIUM SUCCINATE
     Indication: HYPOTENSION
     Route: 042
     Dates: start: 20200728, end: 20200806
  53. VANCOMYCIN [Concomitant]
     Active Substance: VANCOMYCIN
     Indication: EVIDENCE BASED TREATMENT
     Dosage: 1.500 G
     Route: 042
     Dates: start: 20200725, end: 20200728
  54. VANCOMYCIN [Concomitant]
     Active Substance: VANCOMYCIN
     Indication: EVIDENCE BASED TREATMENT
     Dosage: 1.500 G
     Route: 042
     Dates: start: 20200725, end: 20200728
  55. ALBUMIN HUMAN [Concomitant]
     Active Substance: ALBUMIN HUMAN
     Indication: HYPOALBUMINAEMIA
     Route: 042
     Dates: start: 20200731, end: 20200731
  56. HEPARIN SODIUM. [Concomitant]
     Active Substance: HEPARIN SODIUM
     Indication: PULMONARY EMBOLISM
     Dosage: 20000.00 IU
     Route: 042
     Dates: start: 20200728, end: 20200801
  57. CHLORHEXIDINE GLUCONATE. [Concomitant]
     Active Substance: CHLORHEXIDINE GLUCONATE
     Indication: PROPHYLAXIS
     Route: 048
     Dates: start: 20200728, end: 20200808
  58. ALBUTEROL IPRATROPIUM [Concomitant]
     Active Substance: ALBUTEROL\IPRATROPIUM
     Indication: BRONCHOSPASM
     Dosage: 9.000 ML
     Route: 042
     Dates: start: 20200721, end: 20200721
  59. ALBUTEROL IPRATROPIUM [Concomitant]
     Active Substance: ALBUTEROL\IPRATROPIUM
     Indication: WHEEZING
     Dosage: 6.000 ML
     Route: 042
     Dates: start: 20200722, end: 20200722
  60. ALBUTEROL IPRATROPIUM [Concomitant]
     Active Substance: ALBUTEROL\IPRATROPIUM
     Indication: BRONCHOSPASM
     Dosage: 12.000 ML
     Route: 042
     Dates: start: 20200725, end: 20200726
  61. ALBUTEROL IPRATROPIUM [Concomitant]
     Active Substance: ALBUTEROL\IPRATROPIUM
     Indication: BRONCHOSPASM
     Dosage: 9.000 ML
     Route: 042
     Dates: start: 20200727, end: 20200807
  62. PHENYLEPHRINE HCL [Concomitant]
     Active Substance: PHENYLEPHRINE HYDROCHLORIDE
     Indication: HYPOTENSION
     Route: 042
     Dates: start: 20200729, end: 20200729
  63. SODIUM PHOSPHATE [Concomitant]
     Active Substance: SODIUM PHOSPHATE
     Indication: HYPOPHOSPHATAEMIA
     Route: 042
     Dates: start: 20200805, end: 20200805
  64. HYDROXYCHLOROQUINE SULFATE. [Concomitant]
     Active Substance: HYDROXYCHLOROQUINE SULFATE
     Indication: COVID-19
     Route: 048
     Dates: start: 20200729, end: 20200729
  65. ALPRAZOLAM. [Concomitant]
     Active Substance: ALPRAZOLAM
     Indication: ANXIETY
     Route: 048
     Dates: start: 20200727, end: 20200727
  66. ACALABRUTINIB. [Suspect]
     Active Substance: ACALABRUTINIB
     Indication: COVID-19
     Route: 048
     Dates: start: 20200715
  67. ACALABRUTINIB. [Suspect]
     Active Substance: ACALABRUTINIB
     Indication: COVID-19
     Route: 048
     Dates: start: 20200716
  68. ACALABRUTINIB. [Suspect]
     Active Substance: ACALABRUTINIB
     Indication: COVID-19
     Route: 048
     Dates: start: 20200717
  69. ACALABRUTINIB. [Suspect]
     Active Substance: ACALABRUTINIB
     Indication: COVID-19
     Route: 048
     Dates: start: 20200719
  70. ACETAMINOPHEN. [Concomitant]
     Active Substance: ACETAMINOPHEN
     Indication: HEADACHE
     Dosage: 325.0MG AS REQUIRED
     Route: 048
     Dates: end: 20200726
  71. HYDROCODONE [Concomitant]
     Active Substance: HYDROCODONE
     Indication: FIBROMYALGIA
     Dosage: 5.000 MG
     Route: 048
     Dates: end: 20200726
  72. BUDESONIDE. [Concomitant]
     Active Substance: BUDESONIDE
     Indication: PNEUMONIA
     Route: 055
     Dates: start: 20200727, end: 20200807
  73. MIDAZOLAM. [Concomitant]
     Active Substance: MIDAZOLAM
     Indication: SEDATION
     Route: 042
     Dates: start: 20200727, end: 20200727
  74. VECURONIUM BROMIDE. [Concomitant]
     Active Substance: VECURONIUM BROMIDE
     Indication: SEDATION
     Route: 042
     Dates: start: 20200727, end: 20200727
  75. PROPOFOL. [Concomitant]
     Active Substance: PROPOFOL
     Indication: SEDATION
     Route: 042
     Dates: start: 20200727, end: 20200727
  76. ZINC SULFATE. [Concomitant]
     Active Substance: ZINC SULFATE
     Indication: SUPPLEMENTATION THERAPY
     Route: 048
     Dates: start: 20200729, end: 20200807
  77. METOCLOPRAMIDE HCL [Concomitant]
     Active Substance: METOCLOPRAMIDE HYDROCHLORIDE
     Indication: NAUSEA
     Route: 042
     Dates: start: 20200719, end: 20200719
  78. ALBUTEROL IPRATROPIUM [Concomitant]
     Active Substance: ALBUTEROL\IPRATROPIUM
     Indication: WHEEZING
     Dosage: 12.000 ML
     Route: 042
     Dates: start: 20200716, end: 20200720
  79. ALBUTEROL IPRATROPIUM [Concomitant]
     Active Substance: ALBUTEROL\IPRATROPIUM
     Indication: BRONCHOSPASM
     Dosage: 12.000 ML
     Route: 042
     Dates: start: 20200716, end: 20200720
  80. ALBUTEROL IPRATROPIUM [Concomitant]
     Active Substance: ALBUTEROL\IPRATROPIUM
     Indication: BRONCHOSPASM
     Dosage: 9.000 ML
     Route: 042
     Dates: start: 20200721, end: 20200721
  81. SODIUM PHOSPHATE [Concomitant]
     Active Substance: SODIUM PHOSPHATE
     Indication: HYPOPHOSPHATAEMIA
     Route: 042
     Dates: start: 20200713, end: 20200713
  82. ACALABRUTINIB. [Suspect]
     Active Substance: ACALABRUTINIB
     Indication: COVID-19
     Route: 048
     Dates: start: 20200721
  83. ACETAMINOPHEN. [Concomitant]
     Active Substance: ACETAMINOPHEN
     Indication: HEADACHE
     Dosage: 3900.0MG AS REQUIRED
     Route: 048
     Dates: start: 20200713, end: 20200725
  84. ACETAMINOPHEN. [Concomitant]
     Active Substance: ACETAMINOPHEN
     Indication: PYREXIA
     Dosage: 325.000 MG AS REQUIRED
     Route: 048
     Dates: start: 20200731, end: 20200808
  85. HYDROCODONE [Concomitant]
     Active Substance: HYDROCODONE
     Indication: PAIN
     Dosage: 5.000 MG
     Route: 048
     Dates: start: 20200731, end: 20200808
  86. DULOXETINE HCL [Concomitant]
     Active Substance: DULOXETINE HYDROCHLORIDE
     Indication: FIBROMYALGIA
     Route: 048
     Dates: start: 202005, end: 20200804
  87. VECURONIUM BROMIDE. [Concomitant]
     Active Substance: VECURONIUM BROMIDE
     Indication: SEDATION
     Route: 042
     Dates: start: 20200727, end: 20200727
  88. NOREPINEPHRINE BITARTRATE. [Concomitant]
     Active Substance: NOREPINEPHRINE BITARTRATE
     Indication: HYPOTENSION
     Route: 042
     Dates: start: 20200727, end: 20200727
  89. POTASSIUM CHLORIDE. [Concomitant]
     Active Substance: POTASSIUM CHLORIDE
     Indication: HYPOKALAEMIA
     Dosage: 40.000 MEQ
     Route: 048
     Dates: start: 20200714, end: 20200726
  90. POTASSIUM CHLORIDE. [Concomitant]
     Active Substance: POTASSIUM CHLORIDE
     Indication: HYPOKALAEMIA
     Route: 042
     Dates: start: 20200712, end: 20200713
  91. HYDROCORTISONE SODIUM SUCCINATE [Concomitant]
     Active Substance: HYDROCORTISONE SODIUM SUCCINATE
     Indication: HYPOTENSION
     Route: 042
     Dates: start: 20200807
  92. ALBUMIN HUMAN [Concomitant]
     Active Substance: ALBUMIN HUMAN
     Indication: HYPOALBUMINAEMIA
     Route: 042
     Dates: start: 20200729, end: 20200729
  93. ALBUTEROL IPRATROPIUM [Concomitant]
     Active Substance: ALBUTEROL\IPRATROPIUM
     Indication: BRONCHOSPASM
     Dosage: 6.000 ML
     Route: 042
     Dates: start: 20200715, end: 20200715
  94. ALBUTEROL IPRATROPIUM [Concomitant]
     Active Substance: ALBUTEROL\IPRATROPIUM
     Indication: WHEEZING
     Dosage: 9.000 ML
     Route: 042
     Dates: start: 20200721, end: 20200721
  95. ALBUTEROL IPRATROPIUM [Concomitant]
     Active Substance: ALBUTEROL\IPRATROPIUM
     Indication: BRONCHOSPASM
     Dosage: 12.000 ML
     Route: 042
     Dates: start: 20200725, end: 20200726
  96. ALBUTEROL IPRATROPIUM [Concomitant]
     Active Substance: ALBUTEROL\IPRATROPIUM
     Indication: WHEEZING
     Dosage: 9.000 ML
     Route: 042
     Dates: start: 20200727, end: 20200807
  97. SODIUM BICARBONATE. [Concomitant]
     Active Substance: SODIUM BICARBONATE
     Indication: ACIDOSIS
     Dosage: 150.000 MEQ
     Route: 042
     Dates: start: 20200728, end: 20200805
  98. SODIUM PHOSPHATE [Concomitant]
     Active Substance: SODIUM PHOSPHATE
     Indication: HYPOPHOSPHATAEMIA
     Dosage: 20.000 MEQ
     Route: 042
     Dates: start: 20200730, end: 20200731
  99. SODIUM PHOSPHATE [Concomitant]
     Active Substance: SODIUM PHOSPHATE
     Indication: HYPOPHOSPHATAEMIA
     Route: 042
     Dates: start: 20200730, end: 20200730
  100. SODIUM PHOSPHATE [Concomitant]
     Active Substance: SODIUM PHOSPHATE
     Indication: HYPOPHOSPHATAEMIA
     Route: 042
     Dates: start: 20200730, end: 20200730
  101. CEFTRIAXONE. [Concomitant]
     Active Substance: CEFTRIAXONE
     Indication: EVIDENCE BASED TREATMENT
     Route: 042
     Dates: start: 20200713, end: 20200721
  102. INSULIN HUMAN REGULAR [Concomitant]
     Active Substance: INSULIN HUMAN
     Indication: HYPERGLYCAEMIA
     Route: 042
     Dates: start: 20200713, end: 20200713
  103. MORPHINE SULPHATE [Concomitant]
     Active Substance: MORPHINE SULFATE
     Indication: RESTLESSNESS
     Route: 042
     Dates: start: 20200727, end: 20200727
  104. ACALABRUTINIB. [Suspect]
     Active Substance: ACALABRUTINIB
     Indication: COVID-19
     Route: 048
     Dates: start: 20200714
  105. ACALABRUTINIB. [Suspect]
     Active Substance: ACALABRUTINIB
     Indication: COVID-19
     Route: 048
     Dates: start: 20200715
  106. ACALABRUTINIB. [Suspect]
     Active Substance: ACALABRUTINIB
     Indication: COVID-19
     Route: 048
     Dates: start: 20200718
  107. ACALABRUTINIB. [Suspect]
     Active Substance: ACALABRUTINIB
     Indication: COVID-19
     Route: 048
     Dates: start: 20200720
  108. ACALABRUTINIB. [Suspect]
     Active Substance: ACALABRUTINIB
     Indication: COVID-19
     Route: 048
     Dates: start: 20200723
  109. TEMAZEPAM. [Concomitant]
     Active Substance: TEMAZEPAM
     Indication: INSOMNIA
     Dosage: 7.5MG AS REQUIRED
     Route: 048
     Dates: start: 20200712, end: 20200726
  110. ACETAMINOPHEN. [Concomitant]
     Active Substance: ACETAMINOPHEN
     Indication: PYREXIA
     Dosage: 3900.0MG AS REQUIRED
     Route: 048
     Dates: start: 20200713, end: 20200725
  111. ACETAMINOPHEN. [Concomitant]
     Active Substance: ACETAMINOPHEN
     Indication: PAIN
     Dosage: 3900.0MG AS REQUIRED
     Route: 048
     Dates: start: 20200713, end: 20200725
  112. ACETAMINOPHEN. [Concomitant]
     Active Substance: ACETAMINOPHEN
     Indication: PAIN
     Dosage: 325.0MG AS REQUIRED
     Route: 048
     Dates: end: 20200726
  113. ENOXAPARIN SODIUM. [Concomitant]
     Active Substance: ENOXAPARIN SODIUM
     Indication: PROPHYLAXIS
     Route: 058
     Dates: start: 20200726, end: 20200728
  114. LEVOTHYROXINE SODIUM. [Concomitant]
     Active Substance: LEVOTHYROXINE SODIUM
     Indication: HYPOTHYROIDISM
     Route: 048
     Dates: start: 201806, end: 20200727
  115. DEXAMETHASONE. [Concomitant]
     Active Substance: DEXAMETHASONE
     Indication: COVID-19 PNEUMONIA
     Route: 042
     Dates: start: 20200713, end: 20200722
  116. AZITHROMYCIN ANHYDROUS. [Concomitant]
     Active Substance: AZITHROMYCIN ANHYDROUS
     Indication: EVIDENCE BASED TREATMENT
     Route: 048
     Dates: start: 20200714, end: 20200718
  117. BENZOCAINE MENTHOL [Concomitant]
     Indication: OROPHARYNGEAL PAIN
     Dosage: 12.000 OTHER
     Route: 048
     Dates: start: 20200716, end: 20200718
  118. VECURONIUM BROMIDE. [Concomitant]
     Active Substance: VECURONIUM BROMIDE
     Indication: SEDATION
     Route: 042
     Dates: start: 20200727, end: 20200727
  119. VECURONIUM BROMIDE. [Concomitant]
     Active Substance: VECURONIUM BROMIDE
     Indication: SEDATION
     Route: 042
     Dates: start: 20200727, end: 20200727
  120. VECURONIUM BROMIDE. [Concomitant]
     Active Substance: VECURONIUM BROMIDE
     Indication: SEDATION
     Dosage: 0.500 OTHER
     Route: 042
     Dates: start: 20200804
  121. ANGIOTENSIN II [Concomitant]
     Active Substance: ANGIOTENSIN II
     Indication: HYPOTENSION
     Dosage: 2.500 MG
     Route: 042
     Dates: start: 20200728, end: 20200729
  122. HUMALOG [Concomitant]
     Active Substance: INSULIN LISPRO
     Indication: HYPERGLYCAEMIA
     Dosage: 4.000 IU
     Route: 042
     Dates: start: 20200729, end: 20200806
  123. HYDROCORTISONE SODIUM SUCCINATE [Concomitant]
     Active Substance: HYDROCORTISONE SODIUM SUCCINATE
     Indication: ACUTE RESPIRATORY DISTRESS SYNDROME
     Route: 042
     Dates: start: 20200728, end: 20200806
  124. AVIPTADIL. [Concomitant]
     Active Substance: AVIPTADIL
     Indication: COVID-19 PNEUMONIA
     Dosage: 1000UG/INHAL
     Route: 042
     Dates: start: 20200729, end: 20200731
  125. ALBUMIN HUMAN [Concomitant]
     Active Substance: ALBUMIN HUMAN
     Indication: HYPOALBUMINAEMIA
     Route: 042
     Dates: start: 20200807, end: 20200807
  126. HYDROXYCHLOROQUINE [Concomitant]
     Active Substance: HYDROXYCHLOROQUINE
     Indication: COVID-19
     Route: 048
     Dates: start: 20200729, end: 20200806
  127. SODIUM PHOSPHATE [Concomitant]
     Active Substance: SODIUM PHOSPHATE
     Indication: HYPOPHOSPHATAEMIA
     Route: 042
     Dates: start: 20200805, end: 20200805
  128. SODIUM PHOSPHATE [Concomitant]
     Active Substance: SODIUM PHOSPHATE
     Indication: HYPOPHOSPHATAEMIA
     Dosage: 20.000 MEQ
     Route: 042
     Dates: start: 20200730, end: 20200731
  129. GUAIFENESIN DEXTROMETHROPHAN [Concomitant]
     Indication: COUGH
     Dosage: 20.000 ML
     Route: 048
     Dates: start: 20200712, end: 20200725
  130. ACALABRUTINIB. [Suspect]
     Active Substance: ACALABRUTINIB
     Indication: COVID-19
     Route: 048
     Dates: start: 20200721
  131. ACALABRUTINIB. [Suspect]
     Active Substance: ACALABRUTINIB
     Indication: COVID-19
     Route: 048
     Dates: start: 20200722
  132. ONDANSETRON [Concomitant]
     Active Substance: ONDANSETRON
     Indication: NAUSEA
     Dosage: 16.0MG AS REQUIRED
     Route: 042
     Dates: start: 20200713, end: 20200715
  133. ACETAMINOPHEN. [Concomitant]
     Active Substance: ACETAMINOPHEN
     Indication: FIBROMYALGIA
     Dosage: 325.0MG AS REQUIRED
     Route: 048
     Dates: end: 20200726
  134. ACETAMINOPHEN. [Concomitant]
     Active Substance: ACETAMINOPHEN
     Indication: HEADACHE
     Dosage: 325.000 MG AS REQUIRED
     Route: 048
     Dates: start: 20200731, end: 20200808
  135. MAALOX ANTACID [Concomitant]
     Active Substance: ALUMINUM HYDROXIDE\DIMETHICONE\MAGNESIUM HYDROXIDE
     Indication: DYSPEPSIA
     Dosage: 60.000 ML
     Route: 048
     Dates: start: 20200713, end: 20200715
  136. LEVOTHYROXINE SODIUM. [Concomitant]
     Active Substance: LEVOTHYROXINE SODIUM
     Indication: HYPOTHYROIDISM
     Route: 048
     Dates: start: 201806, end: 20200727
  137. BUDESONIDE. [Concomitant]
     Active Substance: BUDESONIDE
     Indication: PNEUMONIA
     Dosage: 360UG/INHAL
     Route: 055
     Dates: start: 20200717, end: 20200726
  138. FENTANYL CITRATE. [Concomitant]
     Active Substance: FENTANYL CITRATE
     Indication: ANALGESIC THERAPY
     Dosage: 50.000 UG
     Route: 042
     Dates: start: 20200727, end: 20200806
  139. NOREPINEPHRINE BITARTRATE. [Concomitant]
     Active Substance: NOREPINEPHRINE BITARTRATE
     Indication: HYPOTENSION
     Route: 042
     Dates: start: 20200727, end: 20200727
  140. NOREPINEPHRINE BITARTRATE. [Concomitant]
     Active Substance: NOREPINEPHRINE BITARTRATE
     Indication: HYPOTENSION
     Dosage: 15.000 OTHER
     Route: 042
     Dates: start: 20200727
  141. KETOROLAC TROMETHAMINE. [Concomitant]
     Active Substance: KETOROLAC TROMETHAMINE
     Indication: HEADACHE
     Route: 042
     Dates: start: 20200719, end: 20200719
  142. ALBUTEROL IPRATROPIUM [Concomitant]
     Active Substance: ALBUTEROL\IPRATROPIUM
     Indication: WHEEZING
     Dosage: 12.000 ML
     Route: 042
     Dates: start: 20200725, end: 20200726
  143. ALBUTEROL IPRATROPIUM [Concomitant]
     Active Substance: ALBUTEROL\IPRATROPIUM
     Indication: BRONCHOSPASM
     Dosage: 9.000 ML
     Route: 042
     Dates: start: 20200727, end: 20200807
  144. SODIUM BICARBONATE. [Concomitant]
     Active Substance: SODIUM BICARBONATE
     Indication: ACIDOSIS
     Dosage: 500.000 ML
     Route: 042
     Dates: start: 20200806, end: 20200807
  145. PROPOFAL [Concomitant]
     Indication: SEDATION
     Dosage: 15.000 OTHER
     Route: 042
     Dates: start: 20200729, end: 20200806
  146. SODIUM PHOSPHATE [Concomitant]
     Active Substance: SODIUM PHOSPHATE
     Indication: HYPOPHOSPHATAEMIA
     Route: 042
     Dates: start: 20200805, end: 20200805
  147. FUROSEMIDE. [Concomitant]
     Active Substance: FUROSEMIDE
     Indication: PREMEDICATION
     Route: 042
     Dates: start: 20200714, end: 20200714
  148. ACALABRUTINIB. [Suspect]
     Active Substance: ACALABRUTINIB
     Indication: COVID-19
     Route: 048
     Dates: start: 20200714
  149. ACALABRUTINIB. [Suspect]
     Active Substance: ACALABRUTINIB
     Indication: COVID-19
     Route: 048
     Dates: start: 20200716
  150. ACETAMINOPHEN. [Concomitant]
     Active Substance: ACETAMINOPHEN
     Indication: PYREXIA
     Dosage: 650.0MG AS REQUIRED
     Route: 048
     Dates: start: 20200731, end: 20200731
  151. ACETAMINOPHEN. [Concomitant]
     Active Substance: ACETAMINOPHEN
     Indication: FIBROMYALGIA
     Dosage: 650.0MG AS REQUIRED
     Route: 048
     Dates: start: 20200731, end: 20200731
  152. ACETAMINOPHEN. [Concomitant]
     Active Substance: ACETAMINOPHEN
     Indication: PAIN
     Dosage: 325.000 MG AS REQUIRED
     Route: 048
     Dates: start: 20200731, end: 20200808
  153. PREGABALIN. [Concomitant]
     Active Substance: PREGABALIN
     Indication: FIBROMYALGIA
     Route: 048
     Dates: start: 2019, end: 20200727
  154. CYCLOBENZAPRINE. [Concomitant]
     Active Substance: CYCLOBENZAPRINE
     Indication: FIBROMYALGIA
     Route: 048
     Dates: start: 2018, end: 20200727
  155. LEVOTHYROXINE SODIUM. [Concomitant]
     Active Substance: LEVOTHYROXINE SODIUM
     Indication: HYPOTHYROIDISM
     Route: 048
     Dates: start: 20200728, end: 20200808
  156. LEVOTHYROXINE SODIUM. [Concomitant]
     Active Substance: LEVOTHYROXINE SODIUM
     Indication: HYPOTHYROIDISM
     Route: 048
     Dates: start: 20200728, end: 20200808
  157. AZITHROMYCIN ANHYDROUS. [Concomitant]
     Active Substance: AZITHROMYCIN ANHYDROUS
     Indication: EVIDENCE BASED TREATMENT
     Route: 048
     Dates: start: 20200728, end: 20200801
  158. BUDESONIDE. [Concomitant]
     Active Substance: BUDESONIDE
     Indication: PNEUMONIA
     Dosage: 360UG/INHAL
     Route: 055
     Dates: start: 20200717, end: 20200726
  159. BUDESONIDE. [Concomitant]
     Active Substance: BUDESONIDE
     Indication: PNEUMONIA
     Route: 055
     Dates: start: 20200727, end: 20200807
  160. DOPAMINE HCL [Concomitant]
     Active Substance: DOPAMINE HYDROCHLORIDE
     Indication: HYPOXIA
     Dosage: 8.000 OTHER
     Route: 042
     Dates: start: 20200729, end: 20200729
  161. POTASSIUM CHLORIDE. [Concomitant]
     Active Substance: POTASSIUM CHLORIDE
     Indication: HYPOKALAEMIA
     Dosage: 40.000 MEQ
     Route: 048
     Dates: start: 20200714, end: 20200726
  162. CYCLOBENZAPRINE HCL [Concomitant]
     Active Substance: CYCLOBENZAPRINE HYDROCHLORIDE
     Indication: FIBROMYALGIA
     Route: 048
     Dates: start: 20200727, end: 20200803
  163. ALBUTEROL IPRATROPIUM [Concomitant]
     Active Substance: ALBUTEROL\IPRATROPIUM
     Indication: BRONCHOSPASM
     Dosage: 12.000 ML
     Route: 042
     Dates: start: 20200716, end: 20200720
  164. ALBUTEROL IPRATROPIUM [Concomitant]
     Active Substance: ALBUTEROL\IPRATROPIUM
     Indication: BRONCHOSPASM
     Dosage: 12.000 ML
     Route: 042
     Dates: start: 20200716, end: 20200720
  165. ALBUTEROL IPRATROPIUM [Concomitant]
     Active Substance: ALBUTEROL\IPRATROPIUM
     Indication: BRONCHOSPASM
     Dosage: 9.000 ML
     Route: 042
     Dates: start: 20200721, end: 20200721
  166. ALBUTEROL IPRATROPIUM [Concomitant]
     Active Substance: ALBUTEROL\IPRATROPIUM
     Indication: BRONCHOSPASM
     Dosage: 6.000 ML
     Route: 042
     Dates: start: 20200722, end: 20200722
  167. ALBUTEROL IPRATROPIUM [Concomitant]
     Active Substance: ALBUTEROL\IPRATROPIUM
     Indication: WHEEZING
     Dosage: 9.000 ML
     Route: 042
     Dates: start: 20200723, end: 20200724
  168. ALBUTEROL IPRATROPIUM [Concomitant]
     Active Substance: ALBUTEROL\IPRATROPIUM
     Indication: BRONCHOSPASM
     Dosage: 9.000 ML
     Route: 042
     Dates: start: 20200723, end: 20200724
  169. ALBUTEROL IPRATROPIUM [Concomitant]
     Active Substance: ALBUTEROL\IPRATROPIUM
     Indication: BRONCHOSPASM
     Dosage: 12.000 ML
     Route: 042
     Dates: start: 20200725, end: 20200726
  170. SODIUM PHOSPHATE [Concomitant]
     Active Substance: SODIUM PHOSPHATE
     Indication: HYPOPHOSPHATAEMIA
     Route: 042
     Dates: start: 20200730, end: 20200730
  171. SODIUM PHOSPHATE [Concomitant]
     Active Substance: SODIUM PHOSPHATE
     Indication: HYPOPHOSPHATAEMIA
     Route: 042
     Dates: start: 20200713, end: 20200713
  172. PREGABLIN [Concomitant]
     Active Substance: PREGABALIN
     Indication: FIBROMYALGIA
     Route: 048
     Dates: start: 20200727, end: 20200728
  173. SODIUM POLYSTYRENE SULFONATE. [Concomitant]
     Active Substance: SODIUM POLYSTYRENE SULFONATE
     Indication: HYPERKALAEMIA
     Route: 048
     Dates: start: 20200713, end: 20200713

REACTIONS (1)
  - Hepatotoxicity [Recovered/Resolved]

NARRATIVE: CASE EVENT DATE: 20200729
